FAERS Safety Report 10563459 (Version 1)
Quarter: 2014Q4

REPORT INFORMATION
  Report Type: Spontaneous
  Country: US (occurrence: None)
  Receive Date: 20141103
  Receipt Date: 20141103
  Transmission Date: 20150529
  Serious: Yes (Other)
  Sender: FDA-Public Use
  Company Number: None

PATIENT
  Age: 50 Year

DRUGS (1)
  1. CIPROFLOXACIN. [Suspect]
     Active Substance: CIPROFLOXACIN
     Indication: DIVERTICULITIS
     Dosage: AS PRESCRIBED.?TAKEN BY MOUTH
     Route: 048

REACTIONS (8)
  - Asthenia [None]
  - Joint lock [None]
  - Insomnia [None]
  - Impaired driving ability [None]
  - Eye irritation [None]
  - Anxiety [None]
  - Myalgia [None]
  - Headache [None]

NARRATIVE: CASE EVENT DATE: 20130603
